FAERS Safety Report 4360485-6 (Version None)
Quarter: 2004Q2

REPORT INFORMATION
  Report Type: 
  Country: None (occurrence: None)
  Receive Date: 20040514
  Receipt Date: 20040427
  Transmission Date: 20050107
  Serious: Yes (Hospitalization)
  Sender: FDA-Public Use
  Company Number: 185423

PATIENT
  Age: 49 Year
  Sex: Male
  Weight: 81.6475 kg

DRUGS (13)
  1. AVONEX [Suspect]
     Indication: MULTIPLE SCLEROSIS
     Dosage: 30 MCG QW IM
     Route: 030
  2. AVONEX [Suspect]
     Indication: MULTIPLE SCLEROSIS
     Dosage: 30 MCG QW IM
     Route: 030
     Dates: start: 20030101, end: 20040101
  3. DEPAKOTE [Concomitant]
  4. NEURONTIN [Concomitant]
  5. DITROPAN [Concomitant]
  6. ZANAFLEX [Concomitant]
  7. PROTONIX [Concomitant]
  8. CELEXA [Concomitant]
  9. XANAX [Concomitant]
  10. DULCOLAX [Concomitant]
  11. COLACE [Concomitant]
  12. ASPIRIN [Concomitant]
  13. CIPRO [Concomitant]

REACTIONS (12)
  - BLOOD CHOLESTEROL INCREASED [None]
  - EXCORIATION [None]
  - FACE INJURY [None]
  - JAW FRACTURE [None]
  - LOSS OF CONSCIOUSNESS [None]
  - LOWER LIMB FRACTURE [None]
  - NEURALGIA [None]
  - OPEN FRACTURE [None]
  - ROAD TRAFFIC ACCIDENT [None]
  - TIBIA FRACTURE [None]
  - TRAUMATIC AMPUTATION [None]
  - VOCAL CORD DISORDER [None]
